FAERS Safety Report 6517627-3 (Version None)
Quarter: 2009Q4

REPORT INFORMATION
  Report Type: 
  Country: None (occurrence: None)
  Receive Date: 20091224
  Receipt Date: 20091216
  Transmission Date: 20100525
  Serious: Yes (Other)
  Sender: FDA-Public Use
  Company Number: PHHY2009CA56341

PATIENT

DRUGS (9)
  1. ALISKIREN ALI+ [Suspect]
     Indication: HYPERTENSION
     Dosage: UNK
     Route: 048
     Dates: start: 20090930, end: 20091022
  2. AMITRIPTYLINE [Concomitant]
     Dosage: UNK
  3. CRESTOR [Concomitant]
     Dosage: 20 MG, UNK
  4. ASPIRIN [Concomitant]
     Dosage: 81 MG, UNK
  5. ELTROXIN [Concomitant]
     Dosage: 50 MG, UNK
  6. HUMALOG [Concomitant]
     Dosage: UNK
  7. NORVASC [Concomitant]
     Dosage: 10 MG, UNK
  8. HYDROCHLOROTHIAZIDE [Concomitant]
     Dosage: 25 MG, UNK
  9. AVAPRO [Concomitant]
     Dosage: 300 MG, UNK

REACTIONS (1)
  - RENAL IMPAIRMENT [None]
